FAERS Safety Report 7033176-0 (Version None)
Quarter: 2010Q4

REPORT INFORMATION
  Report Type: 
  Country: None (occurrence: None)
  Receive Date: 20101007
  Receipt Date: 20100922
  Transmission Date: 20110411
  Serious: Yes (Hospitalization, Other)
  Sender: FDA-Public Use
  Company Number: PHEH2008US02970

PATIENT
  Sex: Female

DRUGS (20)
  1. AREDIA [Suspect]
     Dosage: UNK
     Dates: start: 20000101
  2. HYDROCODONE [Concomitant]
  3. PROMETHAZINE W/ CODEINE [Concomitant]
  4. BIAXIN [Concomitant]
  5. LIPITOR [Concomitant]
  6. AZITHROMYCIN [Concomitant]
  7. OSMOPREP (PHOSPHORIC ACID SODIUM) [Concomitant]
  8. TRANDOLAPRIL [Concomitant]
  9. OXYCODONE HCL AND ACETAMINOPHEN [Concomitant]
  10. LYRICA [Concomitant]
  11. BACLOFEN [Concomitant]
  12. BENAZEPRIL HYDROCHLORIDE [Concomitant]
  13. VALTREX [Concomitant]
  14. BIAFINE [Suspect]
  15. CEPHALEXIN [Concomitant]
  16. CLINDAMYCIN [Concomitant]
  17. PERIOGARD [Concomitant]
  18. ADRIAMYCIN PFS [Concomitant]
  19. CYTOXAN [Concomitant]
  20. HYDROCORTISONE [Concomitant]

REACTIONS (15)
  - ANAEMIA [None]
  - ANXIETY [None]
  - APPENDICITIS [None]
  - DENTAL IMPLANTATION [None]
  - EMOTIONAL DISTRESS [None]
  - INFECTION [None]
  - INJURY [None]
  - MUCOSAL INFLAMMATION [None]
  - NEUTROPENIA [None]
  - OSTEONECROSIS OF JAW [None]
  - PAIN [None]
  - PHYSICAL DISABILITY [None]
  - SCAR [None]
  - THROMBOCYTOPENIA [None]
  - TOOTH EXTRACTION [None]
